FAERS Safety Report 7198890-5 (Version None)
Quarter: 2010Q4

REPORT INFORMATION
  Report Type: 
  Country: None (occurrence: None)
  Receive Date: 20101227
  Receipt Date: 20101222
  Transmission Date: 20110411
  Serious: Yes (Hospitalization)
  Sender: FDA-Public Use
  Company Number: JP-ABBOTT-10P-087-0689450-00

PATIENT
  Sex: Male

DRUGS (20)
  1. HUMIRA [Suspect]
     Indication: RHEUMATOID ARTHRITIS
     Route: 058
     Dates: start: 20090721, end: 20100202
  2. HUMIRA [Suspect]
     Dates: start: 20100316, end: 20100608
  3. SALAZOSULFAPYRIDINE [Concomitant]
     Indication: RHEUMATOID ARTHRITIS
     Dosage: 1000 MG DAILY
  4. BUCILLAMINE [Concomitant]
     Indication: RHEUMATOID ARTHRITIS
     Dosage: 200 MG DAILY
  5. PREDNISOLONE [Concomitant]
     Indication: RHEUMATOID ARTHRITIS
     Dosage: 7.5 MG DAILY
     Route: 048
  6. GLIMEPIRIDE [Concomitant]
     Indication: PRODUCT USED FOR UNKNOWN INDICATION
     Dosage: 0.5 MG DAILY
  7. SODIUM ALGINATE [Concomitant]
     Indication: PROPHYLAXIS
     Dosage: 40 ML DAILY
  8. SODIUM ALGINATE [Concomitant]
     Indication: GASTROINTESTINAL MUCOSAL DISORDER
  9. AMBROXOL HYDROCHLORIDE [Concomitant]
     Indication: SPUTUM RETENTION
  10. BERAPROST SODIUM [Concomitant]
     Indication: PROPHYLAXIS
     Dosage: 3-20 MG TABLETS DAILY
  11. BERAPROST SODIUM [Concomitant]
     Indication: PULMONARY HYPERTENSION
  12. ECABET SODIUM [Concomitant]
     Indication: PROPHYLAXIS
     Dosage: 4.5 GRAM DAILY
  13. ECABET SODIUM [Concomitant]
     Indication: GASTROINTESTINAL MUCOSAL DISORDER
  14. MECOBALAMIN [Concomitant]
     Indication: PROPHYLAXIS
     Dosage: 3-500MCG DAILY
  15. MECOBALAMIN [Concomitant]
     Indication: NEUROPATHY PERIPHERAL
  16. DICLOFENAC SODIUM [Concomitant]
     Indication: RHEUMATOID ARTHRITIS
     Dosage: 2-25 MG TABLETS DAILY
  17. FERROUS CITRATE [Concomitant]
     Indication: PROPHYLAXIS
     Dosage: 1-50 MG TABLET DAILY
  18. FERROUS CITRATE [Concomitant]
     Indication: ANAEMIA
  19. NIFEDIPINE [Concomitant]
     Indication: HYPERTENSION
     Dosage: 20 MG DAILY
     Dates: start: 20091222, end: 20100118
  20. NIFEDIPINE [Concomitant]
     Dosage: 40 MG DAILY
     Dates: start: 20100119

REACTIONS (1)
  - TRANSIENT ISCHAEMIC ATTACK [None]
